FAERS Safety Report 9778256 (Version 1)
Quarter: 2013Q4

REPORT INFORMATION
  Report Type: Spontaneous
  Country: ES (occurrence: ES)
  Receive Date: 20131223
  Receipt Date: 20131223
  Transmission Date: 20140711
  Serious: Yes (Hospitalization, Other)
  Sender: FDA-Public Use
  Company Number: ES-ELI_LILLY_AND_COMPANY-ES201312005530

PATIENT
  Age: 65 Year
  Sex: Female

DRUGS (2)
  1. FORSTEO [Suspect]
     Indication: OSTEOPOROSIS POSTMENOPAUSAL
     Dosage: 20 UG, QD
     Route: 058
     Dates: start: 20130620
  2. HEPARIN [Concomitant]
     Indication: PROPHYLAXIS
     Dosage: UNK
     Route: 065
     Dates: end: 201312

REACTIONS (6)
  - Haematoma [Recovering/Resolving]
  - Lung infection [Recovered/Resolved]
  - Lung infection [Recovered/Resolved]
  - Lung infection [Unknown]
  - Anaemia [Unknown]
  - Nausea [Recovered/Resolved]
